FAERS Safety Report 7832118-5 (Version None)
Quarter: 2011Q4

REPORT INFORMATION
  Report Type: 
  Country: None (occurrence: None)
  Receive Date: 20111022
  Receipt Date: 20110929
  Transmission Date: 20120403
  Serious: No
  Sender: FDA-Public Use
  Company Number: US-BAYER-2011-093004

PATIENT
  Sex: Female

DRUGS (1)
  1. MIRENA [Suspect]
     Indication: CONTRACEPTION
     Dosage: 20 MCG/24HR, UNK
     Route: 015
     Dates: start: 20090122

REACTIONS (7)
  - HOT FLUSH [None]
  - LOSS OF LIBIDO [None]
  - ALOPECIA [None]
  - FATIGUE [None]
  - NIGHT SWEATS [None]
  - ANXIETY [None]
  - MOOD SWINGS [None]
